FAERS Safety Report 18730207 (Version 1)
Quarter: 2021Q1

REPORT INFORMATION
  Report Type: Spontaneous
  Country: US (occurrence: US)
  Receive Date: 20210112
  Receipt Date: 20210112
  Transmission Date: 20210419
  Serious: Yes (Other)
  Sender: FDA-Public Use
  Company Number: US-PFIZER INC-2021008120

PATIENT
  Age: 51 Year
  Sex: Female
  Weight: 59.42 kg

DRUGS (2)
  1. NEURONTIN [Suspect]
     Active Substance: GABAPENTIN
     Indication: ROAD TRAFFIC ACCIDENT
  2. NEURONTIN [Suspect]
     Active Substance: GABAPENTIN
     Indication: COMPLEX REGIONAL PAIN SYNDROME
     Dosage: 600 MG, 2X/DAY
     Dates: start: 201704

REACTIONS (6)
  - Weight decreased [Unknown]
  - Herpes zoster [Recovered/Resolved]
  - Off label use [Unknown]
  - Urethral prolapse [Unknown]
  - Neuralgia [Not Recovered/Not Resolved]
  - Pruritus [Unknown]

NARRATIVE: CASE EVENT DATE: 201704
